FAERS Safety Report 9255696 (Version 2)
Quarter: 2013Q2

REPORT INFORMATION
  Report Type: Report from Study
  Country: US (occurrence: US)
  Receive Date: 20130425
  Receipt Date: 20130515
  Transmission Date: 20140414
  Serious: Yes (Hospitalization)
  Sender: FDA-Public Use
  Company Number: US-FRI-1000044479

PATIENT
  Age: 32 Year
  Sex: Male
  Weight: 71.5 kg

DRUGS (5)
  1. CEFTAROLINE FOSAMIL (OPEN-LABEL) [Suspect]
     Indication: BACTERAEMIA
     Dosage: 1800 MG
     Route: 042
     Dates: start: 20130404, end: 20130408
  2. PERCOCET [Concomitant]
     Indication: PAIN
     Route: 048
  3. COLACE [Concomitant]
     Indication: CONSTIPATION PROPHYLAXIS
     Dosage: 200 MG
     Route: 048
  4. BACTRIM DS [Concomitant]
     Indication: STAPHYLOCOCCAL BACTERAEMIA
     Route: 048
  5. BACTRIM DS [Concomitant]
     Indication: URINARY TRACT INFECTION

REACTIONS (1)
  - Hypercalcaemia [Recovered/Resolved]
